FAERS Safety Report 11778892 (Version 4)
Quarter: 2019Q2

REPORT INFORMATION
  Report Type: Spontaneous
  Country: US (occurrence: US)
  Receive Date: 20151125
  Receipt Date: 20190515
  Transmission Date: 20190711
  Serious: Yes (Hospitalization)
  Sender: FDA-Public Use
  Company Number: US-BAUSCH-BL-2015-028258

PATIENT
  Age: 62 Year
  Sex: Male
  Weight: 158.9 kg

DRUGS (3)
  1. XIFAXAN [Suspect]
     Active Substance: RIFAXIMIN
     Indication: HEPATIC ENCEPHALOPATHY
     Dosage: ABOUT 6 YEARS AGO
     Route: 048
  2. XIFAXAN [Suspect]
     Active Substance: RIFAXIMIN
     Indication: HEPATIC CIRRHOSIS
     Route: 048
     Dates: start: 201503, end: 20190506
  3. LACTULOSE. [Concomitant]
     Active Substance: LACTULOSE
     Indication: PRODUCT USED FOR UNKNOWN INDICATION
     Route: 048

REACTIONS (11)
  - Dizziness [Not Recovered/Not Resolved]
  - Ammonia increased [Not Recovered/Not Resolved]
  - Arthralgia [Recovering/Resolving]
  - Feeling abnormal [Not Recovered/Not Resolved]
  - Lung infection [Unknown]
  - Thinking abnormal [Not Recovered/Not Resolved]
  - Therapy cessation [Unknown]
  - Malaise [Not Recovered/Not Resolved]
  - Myalgia [Recovering/Resolving]
  - Intentional product use issue [Unknown]
  - Memory impairment [Unknown]

NARRATIVE: CASE EVENT DATE: 201509
